FAERS Safety Report 24193652 (Version 1)
Quarter: 2024Q3

REPORT INFORMATION
  Report Type: Spontaneous
  Country: US (occurrence: US)
  Receive Date: 20240809
  Receipt Date: 20240809
  Transmission Date: 20241017
  Serious: Yes (Hospitalization)
  Sender: RANBAXY
  Company Number: US-SUN PHARMACEUTICAL INDUSTRIES LTD-2024R1-461390

PATIENT
  Age: 30 Year
  Sex: Female

DRUGS (9)
  1. PREDNISONE [Suspect]
     Active Substance: PREDNISONE
     Indication: Cholangitis sclerosing
     Dosage: UNK
     Route: 065
  2. PREDNISONE [Suspect]
     Active Substance: PREDNISONE
     Indication: Autoimmune hepatitis
  3. PREDNISONE [Suspect]
     Active Substance: PREDNISONE
     Indication: Overlap syndrome
  4. AZATHIOPRINE [Suspect]
     Active Substance: AZATHIOPRINE
     Indication: Cholangitis sclerosing
     Route: 065
  5. AZATHIOPRINE [Suspect]
     Active Substance: AZATHIOPRINE
     Indication: Autoimmune hepatitis
  6. AZATHIOPRINE [Suspect]
     Active Substance: AZATHIOPRINE
     Indication: Overlap syndrome
  7. USTEKINUMAB [Suspect]
     Active Substance: USTEKINUMAB
     Indication: Cholangitis sclerosing
     Dosage: UNK
     Route: 065
  8. USTEKINUMAB [Suspect]
     Active Substance: USTEKINUMAB
     Indication: Autoimmune hepatitis
  9. USTEKINUMAB [Suspect]
     Active Substance: USTEKINUMAB
     Indication: Overlap syndrome

REACTIONS (1)
  - Therapy partial responder [Unknown]
